FAERS Safety Report 6912177-4 (Version None)
Quarter: 2010Q3

REPORT INFORMATION
  Report Type: 
  Country: None (occurrence: None)
  Receive Date: 20100806
  Receipt Date: 20080229
  Transmission Date: 20110219
  Serious: No
  Sender: FDA-Public Use
  Company Number: US-PFIZER INC-2008015143

PATIENT
  Sex: Male

DRUGS (3)
  1. GLIPIZIDE [Suspect]
  2. PLAVIX [Interacting]
  3. CILOSTAZOL [Interacting]

REACTIONS (2)
  - BLOOD GLUCOSE INCREASED [None]
  - DRUG INTERACTION [None]
